FAERS Safety Report 25614069 (Version 2)
Quarter: 2025Q3

REPORT INFORMATION
  Report Type: Spontaneous
  Country: US (occurrence: US)
  Receive Date: 20250728
  Receipt Date: 20250808
  Transmission Date: 20251020
  Serious: Yes (Hospitalization, Other)
  Sender: RECKITT BENCKISER
  Company Number: US-INDIVIOR US-INDV-153463-2024

PATIENT

DRUGS (16)
  1. SUBOXONE [Suspect]
     Active Substance: BUPRENORPHINE HYDROCHLORIDE\NALOXONE HYDROCHLORIDE
     Indication: Drug use disorder
     Dosage: 8 MILLIGRAM, BID
     Route: 060
     Dates: start: 20180628
  2. SUBOXONE [Suspect]
     Active Substance: BUPRENORPHINE HYDROCHLORIDE\NALOXONE HYDROCHLORIDE
     Dosage: 8 MILLIGRAM, TID
     Route: 060
     Dates: start: 20181011
  3. SUBOXONE [Suspect]
     Active Substance: BUPRENORPHINE HYDROCHLORIDE\NALOXONE HYDROCHLORIDE
     Dosage: 8 MILLIGRAM, TID
     Route: 060
     Dates: start: 201812
  4. SUBOXONE [Suspect]
     Active Substance: BUPRENORPHINE HYDROCHLORIDE\NALOXONE HYDROCHLORIDE
     Dosage: 8 MILLIGRAM, BID
     Route: 060
     Dates: start: 20190205
  5. SUBOXONE [Suspect]
     Active Substance: BUPRENORPHINE HYDROCHLORIDE\NALOXONE HYDROCHLORIDE
     Dosage: 12 MILLIGRAM, QD
     Route: 060
     Dates: start: 20190820
  6. SUBOXONE [Suspect]
     Active Substance: BUPRENORPHINE HYDROCHLORIDE\NALOXONE HYDROCHLORIDE
     Dosage: 16 MILLIGRAM, QD
     Route: 060
     Dates: start: 20190917
  7. SUBOXONE [Suspect]
     Active Substance: BUPRENORPHINE HYDROCHLORIDE\NALOXONE HYDROCHLORIDE
     Dosage: 8 MILLIGRAM, TID
     Route: 060
     Dates: start: 20241212
  8. SUBOXONE [Suspect]
     Active Substance: BUPRENORPHINE HYDROCHLORIDE\NALOXONE HYDROCHLORIDE
     Indication: Drug use disorder
     Dosage: 4 MILLIGRAM, BID
     Route: 060
     Dates: start: 20180404
  9. BUPRENORPHINE [Suspect]
     Active Substance: BUPRENORPHINE
     Indication: Drug use disorder
     Dosage: 8 MILLIGRAM, QD
     Route: 065
     Dates: start: 20181130
  10. BUPRENORPHINE\NALOXONE [Suspect]
     Active Substance: BUPRENORPHINE\NALOXONE
     Indication: Drug use disorder
     Route: 065
     Dates: start: 202308
  11. TYLENOL [Suspect]
     Active Substance: ACETAMINOPHEN
     Indication: Product used for unknown indication
     Route: 065
     Dates: start: 201707
  12. HYDROCHLOROTHIAZIDE [Suspect]
     Active Substance: HYDROCHLOROTHIAZIDE
     Indication: Oedema
     Dosage: 12.5 MILLIGRAM, QD
     Route: 048
  13. VYVANSE [Suspect]
     Active Substance: LISDEXAMFETAMINE DIMESYLATE
     Indication: Attention deficit hyperactivity disorder
     Route: 065
     Dates: start: 2024
  14. VALIUM [Suspect]
     Active Substance: DIAZEPAM
     Indication: Anxiety
     Dosage: 10 MILLIGRAM, TID
     Route: 048
     Dates: start: 20220519
  15. DICLOFENAC SODIUM [Concomitant]
     Active Substance: DICLOFENAC SODIUM
     Indication: Product used for unknown indication
     Route: 061
     Dates: start: 20241228
  16. FAMOTIDINE [Concomitant]
     Active Substance: FAMOTIDINE
     Indication: Product used for unknown indication
     Dosage: 40 MILLIGRAM, QD
     Route: 048

REACTIONS (42)
  - Myelomalacia [Unknown]
  - Seizure like phenomena [Unknown]
  - Polymyositis [Unknown]
  - Condition aggravated [Unknown]
  - Autoimmune hepatitis [Unknown]
  - Suicidal ideation [Recovered/Resolved]
  - Overdose [Recovered/Resolved]
  - Breast mass [Unknown]
  - Post concussion syndrome [Unknown]
  - Menstruation irregular [Unknown]
  - Gastrointestinal haemorrhage [Unknown]
  - Hepatitis C [Unknown]
  - Sexual dysfunction [Unknown]
  - Micturition urgency [Unknown]
  - Dental caries [Not Recovered/Not Resolved]
  - Tooth erosion [Not Recovered/Not Resolved]
  - Generalised oedema [Unknown]
  - Dysuria [Not Recovered/Not Resolved]
  - Toothache [Unknown]
  - Substance abuse [Recovered/Resolved]
  - Depression [Unknown]
  - Insomnia [Unknown]
  - Constipation [Not Recovered/Not Resolved]
  - Tooth infection [Unknown]
  - Inappropriate schedule of product administration [Unknown]
  - Anxiety [Recovered/Resolved]
  - Urinary tract infection [Recovered/Resolved]
  - Condition aggravated [Recovered/Resolved]
  - Fatigue [Recovered/Resolved]
  - Drug abuse [Recovered/Resolved]
  - Dyspnoea [Unknown]
  - Bacterial vaginosis [Unknown]
  - Oedema peripheral [Recovered/Resolved]
  - Back pain [Unknown]
  - Presyncope [Unknown]
  - Headache [Unknown]
  - Drug diversion [Unknown]
  - COVID-19 [Recovered/Resolved]
  - Abdominal pain [Unknown]
  - Head injury [Recovered/Resolved]
  - Fall [Recovered/Resolved]
  - Neck injury [Unknown]

NARRATIVE: CASE EVENT DATE: 20170701
